FAERS Safety Report 25475877 (Version 2)
Quarter: 2025Q4

REPORT INFORMATION
  Report Type: Spontaneous
  Country: GB (occurrence: GB)
  Receive Date: 20250625
  Receipt Date: 20251003
  Transmission Date: 20260118
  Serious: Yes (Hospitalization, Other)
  Sender: TORRENT PHARMA INC.
  Company Number: None

PATIENT
  Age: 78 Year
  Sex: Female

DRUGS (1)
  1. APIXABAN [Suspect]
     Active Substance: APIXABAN
     Indication: Atrial fibrillation
     Route: 048
     Dates: end: 20250530

REACTIONS (4)
  - Subarachnoid haemorrhage [Recovering/Resolving]
  - Balance disorder [Unknown]
  - Hypokinesia [Unknown]
  - Malaise [Unknown]

NARRATIVE: CASE EVENT DATE: 20250530
